FAERS Safety Report 9713521 (Version 1)
Quarter: 2013Q4

REPORT INFORMATION
  Report Type: Spontaneous
  Country: US (occurrence: None)
  Receive Date: 20131125
  Receipt Date: 20131125
  Transmission Date: 20140711
  Serious: Yes (Hospitalization)
  Sender: FDA-Public Use
  Company Number: None

PATIENT
  Age: 8 Year
  Sex: Male
  Weight: 32.6 kg

DRUGS (9)
  1. CYCLOPHOSPHAMIDE [Suspect]
     Dates: end: 20131112
  2. HYDROCORTISONE [Suspect]
     Dates: end: 20131112
  3. METHOTREXATE [Suspect]
     Dates: end: 20131112
  4. PREDNISONE [Suspect]
     Dates: end: 20131118
  5. VINCRISTINE SULFATE [Suspect]
     Dates: end: 20131112
  6. ALLOPURINOL [Concomitant]
  7. D5W 1/2 NS FLUIDS [Concomitant]
  8. RASBURICASE [Concomitant]
  9. FUROSEMIDE [Concomitant]

REACTIONS (12)
  - Abdominal distension [None]
  - Abdominal pain [None]
  - Pleural effusion [None]
  - Headache [None]
  - Confusional state [None]
  - Disorientation [None]
  - Dizziness [None]
  - Unresponsive to stimuli [None]
  - Dysuria [None]
  - Blood pressure increased [None]
  - Hypertensive encephalopathy [None]
  - Burkitt^s lymphoma [None]
